FAERS Safety Report 19936254 (Version 1)
Quarter: 2021Q4

REPORT INFORMATION
  Report Type: Spontaneous
  Country: FR (occurrence: FR)
  Receive Date: 20211009
  Receipt Date: 20211009
  Transmission Date: 20220303
  Serious: Yes (Hospitalization, Congenital Anomaly, Other)
  Sender: FDA-Public Use
  Company Number: FR-ABBVIE-21K-056-4107432-00

PATIENT
  Sex: Male
  Weight: 3.3 kg

DRUGS (2)
  1. VALPROATE SODIUM [Suspect]
     Active Substance: VALPROATE SODIUM
     Indication: Product used for unknown indication
     Route: 064
     Dates: start: 20020127, end: 20020930
  2. FOLIC ACID [Concomitant]
     Active Substance: FOLIC ACID
     Indication: Product used for unknown indication

REACTIONS (47)
  - Bronchiolitis [Unknown]
  - Neonatal hypocalcaemia [Unknown]
  - Musculoskeletal stiffness [Unknown]
  - Mobility decreased [Unknown]
  - Thrombocytopenia neonatal [Unknown]
  - Cognitive disorder [Unknown]
  - Cerebral cyst [Unknown]
  - Dysmorphism [Unknown]
  - Atrial septal defect [Unknown]
  - Pectus excavatum [Unknown]
  - Impaired reasoning [Unknown]
  - Frenulum breve [Unknown]
  - Heart disease congenital [Unknown]
  - Cerebral ventricle dilatation [Unknown]
  - Learning disorder [Unknown]
  - Kyphosis [Unknown]
  - Language disorder [Unknown]
  - Psychomotor skills impaired [Unknown]
  - Disturbance in attention [Unknown]
  - Prognathism [Unknown]
  - Speech disorder developmental [Unknown]
  - Bradyphrenia [Unknown]
  - Social avoidant behaviour [Unknown]
  - Communication disorder [Unknown]
  - Right ventricular dilatation [Unknown]
  - Visual acuity reduced [Unknown]
  - Dacryocystorhinostomy [Unknown]
  - Dyspnoea exertional [Unknown]
  - Dyspnoea [Unknown]
  - Personal relationship issue [Unknown]
  - Stridor [Unknown]
  - Pharyngeal disorder [Unknown]
  - Bronchitis [Unknown]
  - Conjunctivitis [Unknown]
  - Exercise tolerance decreased [Unknown]
  - Pharyngitis [Unknown]
  - Nasal disorder [Unknown]
  - Ear disorder [Unknown]
  - Fatigue [Unknown]
  - Rhinitis [Unknown]
  - Ear infection [Unknown]
  - Gastric disorder [Unknown]
  - Nasopharyngitis [Unknown]
  - Cough [Unknown]
  - Venous oxygen saturation abnormal [Unknown]
  - Discomfort [Unknown]
  - Lymphadenitis [Unknown]

NARRATIVE: CASE EVENT DATE: 20021101
